FAERS Safety Report 16530150 (Version 7)
Quarter: 2025Q3

REPORT INFORMATION
  Report Type: Report from Study
  Country: CO (occurrence: CO)
  Receive Date: 20190704
  Receipt Date: 20250717
  Transmission Date: 20251020
  Serious: Yes (Life-Threatening, Hospitalization, Other)
  Sender: INCYTE
  Company Number: CO-002147023-PHHY2017CO144942

PATIENT
  Age: 69 Year

DRUGS (20)
  1. RUXOLITINIB [Suspect]
     Active Substance: RUXOLITINIB
     Indication: Primary myelofibrosis
     Dosage: 40 MG, QD
  2. RUXOLITINIB [Suspect]
     Active Substance: RUXOLITINIB
     Dosage: 20 MG, BID
  3. RUXOLITINIB [Suspect]
     Active Substance: RUXOLITINIB
  4. RUXOLITINIB [Suspect]
     Active Substance: RUXOLITINIB
     Dosage: 40 MG, QD
  5. RUXOLITINIB [Suspect]
     Active Substance: RUXOLITINIB
     Dosage: 20 MG, QD
  6. RUXOLITINIB [Suspect]
     Active Substance: RUXOLITINIB
     Dosage: 10 MG, QD
  7. EXJADE [Suspect]
     Active Substance: DEFERASIROX
     Indication: Iron overload
     Dosage: 500 MG, QD
  8. EXJADE [Suspect]
     Active Substance: DEFERASIROX
     Dosage: 360 MG, QD
  9. JADENU [Suspect]
     Active Substance: DEFERASIROX
     Indication: Iron overload
     Dosage: 360 MG, QD
  10. ROSUVASTATIN [Suspect]
     Active Substance: ROSUVASTATIN
     Indication: Product used for unknown indication
     Route: 065
  11. LEVOTHYROXINE SODIUM [Concomitant]
     Active Substance: LEVOTHYROXINE SODIUM
     Indication: Product used for unknown indication
     Route: 065
  12. ESOMEPRAZOLE [Concomitant]
     Active Substance: ESOMEPRAZOLE
     Indication: Product used for unknown indication
     Route: 065
  13. ALLOPURINOL [Concomitant]
     Active Substance: ALLOPURINOL
     Indication: Product used for unknown indication
     Route: 065
  14. ASPIRIN [Concomitant]
     Active Substance: ASPIRIN
     Indication: Product used for unknown indication
     Route: 065
  15. ENALAPRIL [Concomitant]
     Active Substance: ENALAPRIL
     Indication: Product used for unknown indication
     Route: 065
  16. METOPROLOL SUCCINATE [Concomitant]
     Active Substance: METOPROLOL SUCCINATE
     Indication: Product used for unknown indication
     Dosage: 25 MG, QD
     Route: 065
  17. VASTAREL [Concomitant]
     Active Substance: TRIMETAZIDINE DIHYDROCHLORIDE
     Indication: Product used for unknown indication
     Route: 065
  18. ATIVAN [Concomitant]
     Active Substance: LORAZEPAM
     Indication: Product used for unknown indication
     Dosage: 1 DF, QD
     Route: 065
  19. VITAMIN C [Concomitant]
     Active Substance: ASCORBIC ACID
     Indication: Product used for unknown indication
     Route: 065
  20. DARBEPOETIN ALFA [Concomitant]
     Active Substance: DARBEPOETIN ALFA
     Indication: Product used for unknown indication
     Dosage: 50 MG, QW

REACTIONS (26)
  - Chronic kidney disease [Unknown]
  - Cough [Unknown]
  - Crying [Unknown]
  - Fatigue [Unknown]
  - Blood phosphorus increased [Unknown]
  - Aspartate aminotransferase increased [Unknown]
  - Alanine aminotransferase increased [Unknown]
  - Headache [Unknown]
  - Haemoglobin decreased [Unknown]
  - Serum ferritin increased [Unknown]
  - Blood iron increased [Unknown]
  - Asthenia [Unknown]
  - Blood lactate dehydrogenase increased [Unknown]
  - White blood cell count decreased [Unknown]
  - Monocyte count increased [Unknown]
  - Blood parathyroid hormone increased [Unknown]
  - General physical health deterioration [Unknown]
  - Tremor [Unknown]
  - Inappropriate schedule of product administration [Unknown]
  - Platelet count decreased [Unknown]
  - Blood potassium increased [Unknown]
  - Primary myelofibrosis [Unknown]
  - Bronchitis [Unknown]
  - Pulmonary hypertension [Unknown]
  - Cytopenia [Unknown]
  - Blood urea decreased [Unknown]
